FAERS Safety Report 8089168-6 (Version None)
Quarter: 2012Q1

REPORT INFORMATION
  Report Type: 
  Country: None (occurrence: None)
  Receive Date: 20120128
  Receipt Date: 20110830
  Transmission Date: 20120608
  Serious: No
  Sender: FDA-Public Use
  Company Number: US-ABBOTT-11P-163-0732104-00

PATIENT
  Age: 55 Year
  Sex: Male

DRUGS (5)
  1. CELEBREX [Concomitant]
     Indication: BACK PAIN
  2. LISINOPRIL [Concomitant]
     Indication: HYPERTENSION
  3. OXYCONTIN [Concomitant]
     Indication: BACK PAIN
  4. ASPIRIN [Concomitant]
     Indication: HYPERTENSION
  5. HUMIRA [Suspect]
     Indication: PSORIASIS
     Dates: start: 20100101

REACTIONS (3)
  - INJECTION SITE PAIN [None]
  - DEVICE MALFUNCTION [None]
  - INJECTION SITE HAEMORRHAGE [None]
